FAERS Safety Report 23637084 (Version 2)
Quarter: 2025Q4

REPORT INFORMATION
  Report Type: Spontaneous
  Country: JP (occurrence: JP)
  Receive Date: 20240315
  Receipt Date: 20251001
  Transmission Date: 20260117
  Serious: Yes (Other)
  Sender: AKEBIA THERAPEUTICS
  Company Number: JP-IQVIA-JT2024JP000091

PATIENT
  Age: 83 Year
  Sex: Male

DRUGS (25)
  1. FERRIC CITRATE ANHYDROUS [Suspect]
     Active Substance: FERRIC CITRATE ANHYDROUS
     Indication: Hyperphosphataemia
     Dosage: 750 MILLIGRAM, TID
     Route: 048
     Dates: start: 20231017
  2. ENARODUSTAT [Suspect]
     Active Substance: ENARODUSTAT
     Indication: Nephrogenic anaemia
     Dosage: 4 MILLIGRAM, QD
     Route: 048
     Dates: start: 20230703, end: 20231116
  3. ENARODUSTAT [Suspect]
     Active Substance: ENARODUSTAT
     Dosage: 2 MILLIGRAM, QD
     Route: 048
     Dates: start: 20231117, end: 20231120
  4. ATORVASTATIN CALCIUM TRIHYDRATE [Concomitant]
     Active Substance: ATORVASTATIN CALCIUM TRIHYDRATE
     Indication: Hypercholesterolaemia
     Dosage: 10 MILLIGRAM, QD
     Route: 048
     Dates: start: 20230703
  5. ASPIRIN [Concomitant]
     Active Substance: ASPIRIN
     Indication: Thrombosis prophylaxis
     Dosage: 100 MILLIGRAM, QD
     Route: 048
  6. CARVEDILOL [Concomitant]
     Active Substance: CARVEDILOL
     Indication: Cardiac failure chronic
     Dosage: 1.25 MILLIGRAM, QD
     Route: 048
  7. CALCIUM SENNOSIDES [Concomitant]
     Active Substance: SENNOSIDES
     Indication: Constipation
     Dosage: 12 MILLIGRAM, QD
     Route: 048
     Dates: start: 20230703
  8. AMITIZA [Concomitant]
     Active Substance: LUBIPROSTONE
     Indication: Constipation
     Dosage: 24 MICROGRAM, QD
     Route: 048
     Dates: start: 20230703
  9. FOLIC ACID [Concomitant]
     Active Substance: FOLIC ACID
     Indication: Anaemia folate deficiency
     Dosage: 5 MILLIGRAM, QD
     Route: 048
  10. PREDNISOLONE [Concomitant]
     Active Substance: PREDNISOLONE
     Indication: Atheroembolism
     Dosage: 7.5 MILLIGRAM, QD
     Route: 048
     Dates: start: 20230703
  11. LANSOPRAZOLE [Concomitant]
     Active Substance: LANSOPRAZOLE
     Indication: Prophylaxis against gastrointestinal ulcer
     Dosage: 15 MILLIGRAM, QD
     Route: 048
     Dates: start: 20230703
  12. LANSOPRAZOLE [Concomitant]
     Active Substance: LANSOPRAZOLE
     Indication: Duodenal ulcer
  13. POLAPREZINC [Concomitant]
     Active Substance: POLAPREZINC
     Indication: Anaemia
     Dosage: 150 MILLIGRAM, BID
     Route: 048
     Dates: start: 20230701
  14. POLAPREZINC [Concomitant]
     Active Substance: POLAPREZINC
     Indication: Zinc deficiency
  15. HERBALS [Concomitant]
     Active Substance: HERBALS
     Indication: Insomnia
     Dosage: UNK, QD
     Route: 048
     Dates: start: 20230708
  16. ALFACALCIDOL [Concomitant]
     Active Substance: ALFACALCIDOL
     Indication: Hypoparathyroidism
     Dosage: 0.25 MICROGRAM, QD
     Route: 048
     Dates: start: 20230825, end: 20231116
  17. ALFACALCIDOL [Concomitant]
     Active Substance: ALFACALCIDOL
     Dosage: 0.5 MICROGRAM, QD
     Route: 048
     Dates: start: 20231117
  18. RAMELTEON [Concomitant]
     Active Substance: RAMELTEON
     Indication: Insomnia
     Dosage: 8 MILLIGRAM, QD
     Route: 048
     Dates: start: 20231010
  19. GLYCERIN [Concomitant]
     Active Substance: GLYCERIN
     Indication: Constipation
     Dosage: UNK
     Route: 054
     Dates: start: 20231104, end: 20231104
  20. GLYCERIN [Concomitant]
     Active Substance: GLYCERIN
     Dosage: UNK
     Route: 054
     Dates: start: 20231112, end: 20231112
  21. GLYCERIN [Concomitant]
     Active Substance: GLYCERIN
     Dosage: UNK
     Route: 054
     Dates: start: 20231116, end: 20231116
  22. SULFAMETHOXAZOLE\TRIMETHOPRIM [Concomitant]
     Active Substance: SULFAMETHOXAZOLE\TRIMETHOPRIM
     Indication: Antifungal prophylaxis
     Dosage: UNK, QD
     Route: 048
     Dates: start: 20230703
  23. ALPROSTADIL [Concomitant]
     Active Substance: ALPROSTADIL
     Indication: Arterial occlusive disease
     Dosage: 10 MICROGRAM, 3 TIMES/WK
     Route: 042
  24. LEVOCARNITINE FF [Concomitant]
     Indication: Carnitine deficiency
     Dosage: 1000 MILLIGRAM, 3 TIMES/WK
     Route: 042
     Dates: start: 20230705
  25. IRON SUCROSE [Concomitant]
     Active Substance: IRON SUCROSE
     Indication: Iron deficiency anaemia
     Dosage: 40 MILLIGRAM, QWK
     Route: 042
     Dates: start: 20230630

REACTIONS (2)
  - Deep vein thrombosis [Recovered/Resolved]
  - Pulmonary embolism [Recovered/Resolved]

NARRATIVE: CASE EVENT DATE: 20231120
